FAERS Safety Report 20959249 (Version 2)
Quarter: 2022Q2

REPORT INFORMATION
  Report Type: Report from Study
  Country: CA (occurrence: CA)
  Receive Date: 20220614
  Receipt Date: 20220624
  Transmission Date: 20220720
  Serious: Yes (Death)
  Sender: FDA-Public Use
  Company Number: CA-Taiho Oncology Inc-EU-2022-00768

PATIENT
  Age: 45 Year
  Sex: Male

DRUGS (2)
  1. LONSURF [Suspect]
     Active Substance: TIPIRACIL HYDROCHLORIDE\TRIFLURIDINE
     Indication: Colorectal cancer metastatic
     Dosage: CYCLE, DOSE, FREQUENCY UNKNOWN
     Route: 048
     Dates: start: 20220203, end: 20220607
  2. DEXAMETHASONE [Suspect]
     Active Substance: DEXAMETHASONE
     Indication: Product used for unknown indication
     Dosage: DOSE AND FREQUENCY UNKNOWN
     Route: 065

REACTIONS (4)
  - Disease progression [Fatal]
  - Fluid retention [Unknown]
  - Cough [Unknown]
  - Fatigue [Unknown]
